FAERS Safety Report 14013244 (Version 2)
Quarter: 2017Q4

REPORT INFORMATION
  Report Type: Spontaneous
  Country: FR (occurrence: FR)
  Receive Date: 20170926
  Receipt Date: 20171005
  Transmission Date: 20180321
  Serious: Yes (Hospitalization, Other)
  Sender: FDA-Public Use
  Company Number: FR-PFIZER INC-2017409003

PATIENT
  Age: 44 Year
  Sex: Female

DRUGS (9)
  1. SPASFON [Suspect]
     Active Substance: PHLOROGLUCINOL\1,3,5-TRIMETHOXYBENZENE
     Dosage: UNK
     Route: 048
     Dates: start: 20170510, end: 20170510
  2. ALPRAZOLAM. [Suspect]
     Active Substance: ALPRAZOLAM
     Dosage: UNK
     Route: 048
     Dates: start: 20170510, end: 20170510
  3. BISOPROLOL [Suspect]
     Active Substance: BISOPROLOL
     Dosage: UNK
     Route: 048
     Dates: start: 20170510, end: 20170510
  4. KETOPROFEN. [Suspect]
     Active Substance: KETOPROFEN
     Dosage: UNK
     Route: 048
     Dates: start: 20170510, end: 20170510
  5. STRESAM [Suspect]
     Active Substance: ETIFOXINE
     Dosage: UNK
     Route: 048
     Dates: start: 20170510, end: 20170510
  6. VOLTARENE [Suspect]
     Active Substance: DICLOFENAC SODIUM
     Dosage: UNK
     Route: 048
     Dates: start: 20170510, end: 20170510
  7. CODOLIPRANE [Suspect]
     Active Substance: ACETAMINOPHEN\CODEINE PHOSPHATE
     Dosage: UNK
     Route: 048
     Dates: start: 20170510, end: 20170510
  8. LAMALINE [Suspect]
     Active Substance: ACETAMINOPHEN\CAFFEINE\OPIUM
     Dosage: UNK
     Route: 048
     Dates: start: 20170510, end: 20170510
  9. CORGARD [Suspect]
     Active Substance: NADOLOL
     Dosage: 80 MG, UNK
     Route: 048
     Dates: start: 20170510, end: 20170510

REACTIONS (10)
  - Suicide attempt [Unknown]
  - Rectal haemorrhage [Recovered/Resolved]
  - Altered state of consciousness [Recovered/Resolved]
  - Cardiogenic shock [Recovered/Resolved]
  - Constipation [Recovered/Resolved]
  - Melaena [Recovered/Resolved]
  - Gastritis [Recovering/Resolving]
  - Hypotension [Recovered/Resolved]
  - Somnolence [Recovered/Resolved]
  - Bradycardia [Recovered/Resolved]

NARRATIVE: CASE EVENT DATE: 20170510
